FAERS Safety Report 24428830 (Version 3)
Quarter: 2024Q4

REPORT INFORMATION
  Report Type: Spontaneous
  Country: CH (occurrence: CH)
  Receive Date: 20241011
  Receipt Date: 20241115
  Transmission Date: 20250114
  Serious: Yes (Other)
  Sender: KYOWA
  Company Number: CH-KYOWAKIRIN-2024KK022885

PATIENT

DRUGS (1)
  1. POTELIGEO [Suspect]
     Active Substance: MOGAMULIZUMAB-KPKC
     Indication: Cutaneous T-cell lymphoma stage II
     Dosage: AFTER A FEW WEEKS OF TREATMENT (4 CYCLES OF MOGAMULIZUMAB),
     Route: 065

REACTIONS (1)
  - Colitis ulcerative [Not Recovered/Not Resolved]
